FAERS Safety Report 13735818 (Version 1)
Quarter: 2017Q3

REPORT INFORMATION
  Report Type: Spontaneous
  Country: TH (occurrence: TH)
  Receive Date: 20170710
  Receipt Date: 20170710
  Transmission Date: 20171127
  Serious: Yes (Other)
  Sender: FDA-Public Use
  Company Number: PHHY2017TH097623

PATIENT
  Age: 44 Year
  Sex: Male

DRUGS (2)
  1. PAZOPANIB [Suspect]
     Active Substance: PAZOPANIB
     Dosage: 400 MG, QD
     Route: 065
     Dates: end: 201501
  2. PAZOPANIB [Suspect]
     Active Substance: PAZOPANIB
     Indication: RENAL CELL CARCINOMA
     Dosage: 800 MG, QD
     Route: 065
     Dates: start: 201310

REACTIONS (14)
  - Blood thyroid stimulating hormone increased [Unknown]
  - Renal cell carcinoma [Unknown]
  - Fatigue [Not Recovered/Not Resolved]
  - Bronchial obstruction [Unknown]
  - Hypertension [Unknown]
  - Palmar-plantar erythrodysaesthesia syndrome [Unknown]
  - Malignant neoplasm progression [Unknown]
  - Blister [Unknown]
  - Thyroxine free increased [Unknown]
  - Bronchial dysplasia [Unknown]
  - Metastases to lung [Unknown]
  - Pallor [Unknown]
  - Mucosal inflammation [Unknown]
  - Hair colour changes [Unknown]

NARRATIVE: CASE EVENT DATE: 201501
